FAERS Safety Report 9412489 (Version 21)
Quarter: 2014Q4

REPORT INFORMATION
  Report Type: Report from Study
  Country: PH (occurrence: PH)
  Receive Date: 20130722
  Receipt Date: 20141007
  Transmission Date: 20150529
  Serious: Yes (Disabling)
  Sender: FDA-Public Use
  Company Number: PH-ROCHE-1244474

PATIENT
  Age: 27 Year
  Sex: Female
  Weight: 63.6 kg

DRUGS (18)
  1. MK-3034 [Suspect]
     Active Substance: BOCEPREVIR
     Dosage: 4 CAPSULES, ONCE; ORAL
     Route: 048
     Dates: start: 20130710, end: 20130710
  2. RIBAVIRIN. [Suspect]
     Active Substance: RIBAVIRIN
     Indication: CHRONIC HEPATITIS C
     Dosage: 2 CAPSULES, QAM
     Route: 048
     Dates: start: 20130412, end: 20130625
  3. RIBAVIRIN. [Suspect]
     Active Substance: RIBAVIRIN
     Dosage: 3 CAPSULES, QPM
     Route: 048
     Dates: start: 20130412, end: 20130625
  4. MK-3034 [Suspect]
     Active Substance: BOCEPREVIR
     Indication: CHRONIC HEPATITIS C
     Dosage: 4 CAPSULES, ONCE; ORAL
     Route: 048
     Dates: start: 20130524, end: 20130524
  5. MK-3034 [Suspect]
     Active Substance: BOCEPREVIR
     Dosage: 4 CAPSULES, QPM, EVENING
     Route: 048
     Dates: start: 20130616, end: 20130616
  6. PANTOPRAZOLE [Concomitant]
     Active Substance: PANTOPRAZOLE SODIUM
     Route: 065
     Dates: start: 20130606
  7. PEGINTERFERON ALFA-2A [Suspect]
     Active Substance: PEGINTERFERON ALFA-2A
     Route: 058
     Dates: start: 20130705, end: 20130705
  8. ALVEDON [Concomitant]
     Active Substance: ACETAMINOPHEN
     Route: 065
     Dates: start: 20130514, end: 20130715
  9. PEGINTERFERON ALFA-2A [Suspect]
     Active Substance: PEGINTERFERON ALFA-2A
     Indication: CHRONIC HEPATITIS C
     Route: 058
     Dates: start: 20130412, end: 20130628
  10. MK-3034 [Suspect]
     Active Substance: BOCEPREVIR
     Dosage: 4 CAPSULES, QD, AFTERNOON
     Route: 048
     Dates: start: 20130525, end: 20130709
  11. RIBAVIRIN. [Suspect]
     Active Substance: RIBAVIRIN
     Dosage: 1 DF, QAM
     Route: 048
     Dates: start: 20130626, end: 20130709
  12. RIBAVIRIN. [Suspect]
     Active Substance: RIBAVIRIN
     Dosage: 2 DF, QPM
     Route: 048
     Dates: start: 20130710, end: 20130710
  13. RIBAVIRIN. [Suspect]
     Active Substance: RIBAVIRIN
     Dosage: 3 DF QPM
     Route: 048
     Dates: start: 20130412, end: 20130625
  14. RIBAVIRIN. [Suspect]
     Active Substance: RIBAVIRIN
     Dosage: 2 DF, QPM
     Route: 048
     Dates: start: 20130626, end: 20130709
  15. MK-3034 [Suspect]
     Active Substance: BOCEPREVIR
     Dosage: 4 CAPSULES, QPM, EVENING;
     Route: 048
     Dates: start: 20130524, end: 20130614
  16. ALVEDON [Concomitant]
     Active Substance: ACETAMINOPHEN
     Route: 065
     Dates: start: 20130514, end: 20130715
  17. MK-3034 [Suspect]
     Active Substance: BOCEPREVIR
     Dosage: 4 CAPSULES, QPM, EVENING
     Route: 048
     Dates: start: 20130618, end: 20130709
  18. MK-3034 [Suspect]
     Active Substance: BOCEPREVIR
     Dosage: 4 CAPSULES, QAM, MORNING
     Route: 048
     Dates: start: 20130525, end: 20130709

REACTIONS (3)
  - Pancytopenia [Recovered/Resolved]
  - Autoimmune thyroiditis [Recovered/Resolved]
  - Cholecystitis [Recovered/Resolved]

NARRATIVE: CASE EVENT DATE: 20130603
